FAERS Safety Report 5625514-8 (Version None)
Quarter: 2008Q1

REPORT INFORMATION
  Report Type: 
  Country: None (occurrence: None)
  Receive Date: 20080211
  Receipt Date: 20080211
  Transmission Date: 20080703
  Serious: Yes (Hospitalization)
  Sender: FDA-Public Use
  Company Number: None

PATIENT
  Sex: Female
  Weight: 51.71 kg

DRUGS (6)
  1. SUNITINIB [Suspect]
     Indication: NEOPLASM MALIGNANT
     Dosage: 37.5MG/DAY/ORAL/PILL
     Route: 048
     Dates: start: 20071121, end: 20071226
  2. NEURONTIN [Concomitant]
  3. OXYCODONE HCL [Concomitant]
  4. PREDNISONE TAB [Concomitant]
  5. PRILOSEC [Concomitant]
  6. NEXIUM [Concomitant]

REACTIONS (4)
  - CARDIAC VENTRICULAR DISORDER [None]
  - PERICARDIAL EFFUSION [None]
  - PNEUMONIA ASPIRATION [None]
  - VENTRICULAR EXTRASYSTOLES [None]
